FAERS Safety Report 12975815 (Version 1)
Quarter: 2016Q4

REPORT INFORMATION
  Report Type: Spontaneous
  Country: FR (occurrence: FR)
  Receive Date: 20161125
  Receipt Date: 20161125
  Transmission Date: 20170207
  Serious: Yes (Life-Threatening, Other)
  Sender: FDA-Public Use
  Company Number: FR-ABBVIE-16P-056-1792099-00

PATIENT
  Age: 11 Year
  Sex: Female

DRUGS (2)
  1. ENANTONE LP [Suspect]
     Active Substance: LEUPROLIDE ACETATE
     Indication: PRECOCIOUS PUBERTY
     Dosage: 11.25 MG, UNK
     Route: 051
     Dates: start: 201302, end: 201510
  2. ENANTONE LP [Suspect]
     Active Substance: LEUPROLIDE ACETATE
     Indication: PRECOCIOUS PUBERTY
     Dosage: 3.75 MG, Q4WEEKS
     Route: 051
     Dates: start: 201206, end: 201302

REACTIONS (1)
  - Hodgkin^s disease stage IV [Not Recovered/Not Resolved]

NARRATIVE: CASE EVENT DATE: 20160711
